FAERS Safety Report 10623067 (Version 1)
Quarter: 2014Q4

REPORT INFORMATION
  Report Type: Spontaneous
  Country: DK (occurrence: SA)
  Receive Date: 20141203
  Receipt Date: 20141203
  Transmission Date: 20150529
  Serious: Yes (Life-Threatening)
  Sender: FDA-Public Use
  Company Number: SA-FRI-1000072777

PATIENT
  Age: 70 Year
  Sex: Female

DRUGS (1)
  1. ESCITALOPRAM [Suspect]
     Active Substance: ESCITALOPRAM OXALATE
     Indication: DEPRESSION
     Dosage: 10 MG
     Route: 048
     Dates: start: 20141025

REACTIONS (3)
  - Neutropenia [Unknown]
  - Suicide attempt [Unknown]
  - Delusion [Unknown]

NARRATIVE: CASE EVENT DATE: 20141119
